FAERS Safety Report 7089591-2 (Version None)
Quarter: 2010Q4

REPORT INFORMATION
  Report Type: 
  Country: None (occurrence: None)
  Receive Date: 20101108
  Receipt Date: 20101025
  Transmission Date: 20110411
  Serious: Yes (Disabling, Other)
  Sender: FDA-Public Use
  Company Number: US-ELI_LILLY_AND_COMPANY-US201007001521

PATIENT
  Age: 85 Year
  Sex: Female

DRUGS (10)
  1. EVISTA [Suspect]
     Dosage: UNK, UNK
  2. NEURONTIN [Concomitant]
  3. XALATAN [Concomitant]
  4. LUCENTIS [Concomitant]
  5. TRUSOPT [Concomitant]
  6. PRILOSEC [Concomitant]
  7. DETROL [Concomitant]
  8. AMBIEN [Concomitant]
     Dosage: UNK, AS NEEDED
  9. CLONOPIN [Concomitant]
     Dosage: UNK, AS NEEDED
  10. ASCORBIC ACID [Concomitant]

REACTIONS (3)
  - BLINDNESS [None]
  - BREAST CANCER [None]
  - MACULAR DEGENERATION [None]
